FAERS Safety Report 8124900-4 (Version None)
Quarter: 2012Q1

REPORT INFORMATION
  Report Type: 
  Country: None (occurrence: None)
  Receive Date: 20120209
  Receipt Date: 20120131
  Transmission Date: 20120608
  Serious: Yes (Hospitalization, Other)
  Sender: FDA-Public Use
  Company Number: JP-PFIZER INC-2011287105

PATIENT
  Age: 42 Year
  Sex: Female
  Weight: 51.2 kg

DRUGS (7)
  1. MUCOSTA [Concomitant]
     Indication: NAUSEA
     Dosage: UNK
     Dates: start: 20111114, end: 20111115
  2. MUCOSTA [Concomitant]
     Indication: GASTRITIS PROPHYLAXIS
     Dosage: UNK
     Dates: start: 20111120, end: 20111120
  3. PERAPRIN [Concomitant]
     Indication: NAUSEA
     Dosage: UNK
     Dates: start: 20111117, end: 20111122
  4. MYDRIN P [Concomitant]
     Indication: OPHTHALMOLOGICAL EXAMINATION
     Dosage: UNK
     Dates: start: 20111118, end: 20111118
  5. LANSOPRAZOLE [Concomitant]
     Indication: NAUSEA
     Dosage: UNK
     Dates: start: 20111117, end: 20111122
  6. LOXONIN [Concomitant]
     Indication: SCIATICA
     Dosage: AS NEEDED
     Dates: start: 20111120, end: 20111125
  7. CRIZOTINIB [Suspect]
     Indication: NON-SMALL CELL LUNG CANCER
     Dosage: 250 MG, 2X/DAY
     Route: 048
     Dates: start: 20111110, end: 20111120

REACTIONS (2)
  - FEBRILE NEUTROPENIA [None]
  - RASH [None]
